FAERS Safety Report 24885140 (Version 1)
Quarter: 2025Q1

REPORT INFORMATION
  Report Type: Spontaneous
  Country: US (occurrence: US)
  Receive Date: 20250124
  Receipt Date: 20250124
  Transmission Date: 20250409
  Serious: Yes (Hospitalization)
  Sender: PFIZER
  Company Number: US-PFIZER INC-PV202500008919

PATIENT
  Age: 76 Year
  Sex: Male
  Weight: 88.1 kg

DRUGS (2)
  1. MEKTOVI [Suspect]
     Active Substance: BINIMETINIB
     Indication: Metastatic malignant melanoma
  2. MEKTOVI [Suspect]
     Active Substance: BINIMETINIB
     Dosage: 45 MG,  IN THE MORNING AND AT BEDTIME
     Route: 048
     Dates: start: 20241028

REACTIONS (9)
  - Pneumonia [Unknown]
  - Pleural effusion [Unknown]
  - Hypertension [Unknown]
  - Rash maculo-papular [Recovering/Resolving]
  - Condition aggravated [Recovering/Resolving]
  - Insomnia [Unknown]
  - Mood swings [Unknown]
  - Fatigue [Unknown]
  - Off label use [Unknown]

NARRATIVE: CASE EVENT DATE: 20240101
